FAERS Safety Report 8544466-4 (Version None)
Quarter: 2012Q3

REPORT INFORMATION
  Report Type: 
  Country: None (occurrence: None)
  Receive Date: 20120717
  Receipt Date: 20120702
  Transmission Date: 20120928
  Serious: Yes (Other)
  Sender: FDA-Public Use
  Company Number: 2012P1047722

PATIENT
  Sex: Male

DRUGS (1)
  1. METHYLPREDNISOLONE 4MG TAB [Suspect]
     Indication: SCIATICA
     Dates: start: 20120618, end: 20120623

REACTIONS (1)
  - BLOOD GLUCOSE INCREASED [None]
